FAERS Safety Report 7221213-X (Version None)
Quarter: 2011Q1

REPORT INFORMATION
  Report Type: 
  Country: None (occurrence: None)
  Receive Date: 20110112
  Receipt Date: 20110103
  Transmission Date: 20110831
  Serious: Yes (Hospitalization)
  Sender: FDA-Public Use
  Company Number: US-ASTRAZENECA-2011SE00200

PATIENT
  Age: 50 Year
  Sex: Male
  Weight: 111.1 kg

DRUGS (9)
  1. FUROSEMIDE [Concomitant]
  2. CYMBALTA [Concomitant]
  3. SEROQUEL [Suspect]
     Indication: MENTAL DISORDER
     Route: 048
     Dates: start: 20090101
  4. SEROQUEL [Suspect]
     Indication: ANXIETY
     Route: 048
     Dates: start: 20090101
  5. HUMULIN R [Concomitant]
     Dosage: 70/30
  6. WARFARIN [Concomitant]
  7. SEROQUEL [Suspect]
     Indication: DEPRESSION
     Route: 048
     Dates: start: 20090101
  8. SPIRONOLACTONE [Concomitant]
  9. HYDROCODONE [Concomitant]

REACTIONS (14)
  - OSTEOMYELITIS [None]
  - CELLULITIS [None]
  - NAUSEA [None]
  - RENAL FAILURE [None]
  - HYDROTHORAX [None]
  - LOCALISED INFECTION [None]
  - ASTHENIA [None]
  - ANXIETY [None]
  - VOMITING [None]
  - TREMOR [None]
  - THERAPEUTIC RESPONSE UNEXPECTED [None]
  - HYPERHIDROSIS [None]
  - CRYING [None]
  - ANAEMIA [None]
